FAERS Safety Report 6326350-X (Version None)
Quarter: 2009Q3

REPORT INFORMATION
  Report Type: 
  Country: None (occurrence: None)
  Receive Date: 20090821
  Receipt Date: 20090810
  Transmission Date: 20100115
  Serious: Yes (Hospitalization)
  Sender: FDA-Public Use
  Company Number: A-US2009-26181

PATIENT
  Age: 73 Year
  Sex: Female

DRUGS (10)
  1. TRACLEER [Suspect]
     Indication: PULMONARY ARTERIAL HYPERTENSION
     Dosage: 62.5 MG, BID, ORAL
     Route: 048
     Dates: start: 20090303
  2. TOPAMAX [Suspect]
     Indication: MIGRAINE
  3. CYMBALTA [Concomitant]
  4. AMBIEN [Concomitant]
  5. REMERON [Concomitant]
  6. PREMARIN [Concomitant]
  7. XANAX [Concomitant]
  8. MAXALT (RIZATRIPTAN) [Concomitant]
  9. NAPROXEN SODIUM [Concomitant]
  10. ASPIRIN [Concomitant]

REACTIONS (8)
  - BLOOD GLUCOSE INCREASED [None]
  - BLOOD THYROID STIMULATING HORMONE INCREASED [None]
  - CONVULSION [None]
  - HYPOGLYCAEMIA [None]
  - MIGRAINE [None]
  - MITRAL VALVE INCOMPETENCE [None]
  - TRANSIENT ISCHAEMIC ATTACK [None]
  - VITAMIN B12 DECREASED [None]
